FAERS Safety Report 4397975-6 (Version None)
Quarter: 2004Q3

REPORT INFORMATION
  Report Type: 
  Country: None (occurrence: None)
  Receive Date: 20040713
  Receipt Date: 20040702
  Transmission Date: 20050211
  Serious: Yes (Hospitalization)
  Sender: FDA-Public Use
  Company Number: TPA2004A00673

PATIENT
  Age: 63 Year
  Sex: Female
  Weight: 98.4306 kg

DRUGS (8)
  1. PIOGLITAZONE HCL [Suspect]
     Indication: GLUCOSE TOLERANCE IMPAIRED
     Dosage: SEE IMAGE
     Route: 048
     Dates: start: 20040220, end: 20040322
  2. PIOGLITAZONE HCL [Suspect]
     Indication: GLUCOSE TOLERANCE IMPAIRED
     Dosage: SEE IMAGE
     Route: 048
     Dates: start: 20040322, end: 20040515
  3. PIOGLITAZONE HCL [Suspect]
     Indication: GLUCOSE TOLERANCE IMPAIRED
     Dosage: SEE IMAGE
     Route: 048
     Dates: start: 20040604
  4. NAPROXEN [Concomitant]
  5. SERTRALINE HYDROCHLORIDE [Concomitant]
  6. ACYCLOVIR [Concomitant]
  7. RANITIDINE [Concomitant]
  8. ASPIRIN [Concomitant]

REACTIONS (4)
  - ABDOMINAL ADHESIONS [None]
  - ABDOMINAL HERNIA [None]
  - ABDOMINAL PAIN [None]
  - SMALL INTESTINAL OBSTRUCTION [None]
